FAERS Safety Report 13788113 (Version 2)
Quarter: 2017Q3

REPORT INFORMATION
  Report Type: Spontaneous
  Country: US (occurrence: US)
  Receive Date: 20170725
  Receipt Date: 20170809
  Transmission Date: 20171127
  Serious: Yes (Other)
  Sender: FDA-Public Use
  Company Number: US-PFIZER INC-2017313942

PATIENT
  Age: 44 Year
  Sex: Male

DRUGS (1)
  1. METHOTREXATE SODIUM. [Suspect]
     Active Substance: METHOTREXATE SODIUM
     Dosage: UNK

REACTIONS (23)
  - Musculoskeletal stiffness [Unknown]
  - Temperature intolerance [Unknown]
  - Joint effusion [Unknown]
  - Liver function test increased [Unknown]
  - Chest pain [Unknown]
  - Bone fragmentation [Unknown]
  - Arthralgia [Unknown]
  - Oedema peripheral [Unknown]
  - Bursitis [Unknown]
  - Morton^s neuralgia [Unknown]
  - Osteoarthritis [Unknown]
  - Tendon disorder [Unknown]
  - Red blood cell sedimentation rate increased [Not Recovered/Not Resolved]
  - Synovitis [Unknown]
  - Peripheral swelling [Unknown]
  - Memory impairment [Unknown]
  - Renal cell carcinoma [Unknown]
  - C-reactive protein increased [Not Recovered/Not Resolved]
  - Deep vein thrombosis [Unknown]
  - Pain in extremity [Unknown]
  - Muscle spasms [Unknown]
  - Carpal tunnel syndrome [Unknown]
  - Synovial rupture [Unknown]

NARRATIVE: CASE EVENT DATE: 20110906
